FAERS Safety Report 10022724 (Version 1)
Quarter: 2014Q1

REPORT INFORMATION
  Report Type: Spontaneous
  Country: US (occurrence: US)
  Receive Date: 20140319
  Receipt Date: 20140319
  Transmission Date: 20141002
  Serious: No
  Sender: FDA-Public Use
  Company Number: US-PFIZER INC-2014075491

PATIENT
  Age: 42 Year
  Sex: Female
  Weight: 81.63 kg

DRUGS (2)
  1. ADVIL [Suspect]
     Indication: HEADACHE
     Dosage: UNK, AS NEEDED
     Dates: end: 201403
  2. SYNTHROID [Concomitant]
     Indication: HYPERTHYROIDISM
     Dosage: 112 UG, DAILY

REACTIONS (4)
  - Swelling face [Unknown]
  - Lip swelling [Unknown]
  - Eye swelling [Unknown]
  - Hypoaesthesia oral [Not Recovered/Not Resolved]
